FAERS Safety Report 5334682-7 (Version None)
Quarter: 2007Q2

REPORT INFORMATION
  Report Type: 
  Country: None (occurrence: None)
  Receive Date: 20070521
  Receipt Date: 20070511
  Transmission Date: 20071010
  Serious: Yes (Hospitalization, Other)
  Sender: FDA-Public Use
  Company Number: 2007AP000367

PATIENT
  Age: 19 Year
  Sex: Male

DRUGS (2)
  1. LITHIUM CARBONATE CAP [Suspect]
     Indication: BIPOLAR I DISORDER
     Dosage: SEE IMAGE
     Route: 048
  2. ARIPIPRAZOLE [Suspect]
     Indication: BIPOLAR I DISORDER
     Dosage: SEE IMAGE
     Route: 048

REACTIONS (3)
  - DRUG LEVEL ABOVE THERAPEUTIC [None]
  - NEUROLEPTIC MALIGNANT SYNDROME [None]
  - NO THERAPEUTIC RESPONSE [None]
